FAERS Safety Report 9764528 (Version 1)
Quarter: 2013Q4

REPORT INFORMATION
  Report Type: Report from Study
  Country: CL (occurrence: CL)
  Receive Date: 20131217
  Receipt Date: 20131217
  Transmission Date: 20140711
  Serious: Yes (Other)
  Sender: FDA-Public Use
  Company Number: CL-ROCHE-1318516

PATIENT
  Age: 68 Year
  Sex: Female
  Weight: 74 kg

DRUGS (5)
  1. XELODA [Suspect]
     Indication: BREAST CANCER
     Dosage: 14 DAYS PER CYCLE
     Route: 048
     Dates: start: 20131114
  2. PROPANOLOL [Concomitant]
     Indication: HYPERTENSION
     Route: 048
     Dates: start: 2000
  3. FUROSEMIDE [Concomitant]
     Indication: HYPERTENSION
     Route: 048
     Dates: start: 2000
  4. ATORVASTATIN [Concomitant]
     Indication: DYSLIPIDAEMIA
     Route: 048
     Dates: start: 2000
  5. LEVOTHYROXINE [Concomitant]
     Indication: HYPOTHYROIDISM
     Route: 048
     Dates: start: 1970

REACTIONS (4)
  - Syncope [Recovered/Resolved]
  - Dry mouth [Not Recovered/Not Resolved]
  - Diarrhoea [Recovered/Resolved]
  - Heart rate increased [Recovered/Resolved]
